FAERS Safety Report 5175313-9 (Version None)
Quarter: 2006Q4

REPORT INFORMATION
  Report Type: 
  Country: None (occurrence: None)
  Receive Date: 20061212
  Receipt Date: 20061212
  Transmission Date: 20070319
  Serious: Yes (Life-Threatening, Hospitalization)
  Sender: FDA-Public Use
  Company Number: None

PATIENT
  Age: 75 Year
  Sex: Male
  Weight: 65.5 kg

DRUGS (24)
  1. DECITABINE [Suspect]
  2. ALLOPURINOL [Concomitant]
  3. GLIPIZIDE [Concomitant]
  4. LISINOPRIL [Concomitant]
  5. POTASSIUM CHLORIDE [Concomitant]
  6. FUROSEMIDE [Concomitant]
  7. ONDANSETRON HCL [Concomitant]
  8. METOPROLOL TARTRATE [Concomitant]
  9. FILGRASTIM [Concomitant]
  10. ACETAMINOPHEN [Concomitant]
  11. HUMULIN R [Concomitant]
  12. OMEPRAZOLE [Concomitant]
  13. GABAPENTIN [Concomitant]
  14. ERYTHROMYCIN [Concomitant]
  15. DIGOXIN [Concomitant]
  16. CARBOXYMETHYLCELLULOSE SODIUM [Concomitant]
  17. HEMORRHOIDAL/HYDROCORTISONE SUPP [Concomitant]
  18. FUROSEMIDE [Concomitant]
  19. ALLOPURINOL [Concomitant]
  20. SIMVASTATIN [Concomitant]
  21. LACTULOSE [Concomitant]
  22. ACYCLOVIR [Concomitant]
  23. CEFEPIME [Concomitant]
  24. VANCOMYCIN [Concomitant]

REACTIONS (1)
  - NEUTROPENIA [None]
